FAERS Safety Report 9422774 (Version 1)
Quarter: 2013Q3

REPORT INFORMATION
  Report Type: Spontaneous
  Country: US (occurrence: US)
  Receive Date: 20130726
  Receipt Date: 20130726
  Transmission Date: 20140515
  Serious: No
  Sender: FDA-Public Use
  Company Number: US-MYLANLABS-2013S1004941

PATIENT
  Age: 57 Year
  Sex: Female

DRUGS (7)
  1. HALOPERIDOL TABLETS, USP [Suspect]
     Indication: SCHIZOPHRENIA
     Route: 048
     Dates: start: 201301, end: 20130221
  2. HALOPERIDOL TABLETS, USP [Suspect]
     Indication: SCHIZOPHRENIA
     Route: 048
     Dates: start: 20130222, end: 20130226
  3. SEROQUEL [Concomitant]
     Indication: SCHIZOPHRENIA
     Route: 048
  4. ATIVAN [Concomitant]
  5. METFORMIN [Concomitant]
     Indication: DIABETES MELLITUS
     Route: 048
  6. LISINOPRIL [Concomitant]
     Indication: BLOOD PRESSURE INCREASED
  7. PROPRANOLOL [Concomitant]

REACTIONS (5)
  - Suicidal ideation [Recovering/Resolving]
  - Tardive dyskinesia [Recovering/Resolving]
  - Akathisia [Recovering/Resolving]
  - Dystonia [Recovering/Resolving]
  - Libido increased [Recovering/Resolving]
